FAERS Safety Report 14210084 (Version 1)
Quarter: 2017Q4

REPORT INFORMATION
  Report Type: Spontaneous
  Country: US (occurrence: US)
  Receive Date: 20171121
  Receipt Date: 20171121
  Transmission Date: 20180321
  Serious: No
  Sender: FDA-Public Use
  Company Number: US-JNJFOC-20171029992

PATIENT
  Age: 40 Year
  Sex: Female
  Weight: 61.24 kg

DRUGS (1)
  1. SIMPONI [Suspect]
     Active Substance: GOLIMUMAB
     Indication: IMMUNE SYSTEM DISORDER
     Route: 058
     Dates: start: 201708

REACTIONS (3)
  - Weight increased [Not Recovered/Not Resolved]
  - Underdose [Unknown]
  - Syringe issue [Unknown]

NARRATIVE: CASE EVENT DATE: 201708
